FAERS Safety Report 9333107 (Version 1)
Quarter: 2013Q2

REPORT INFORMATION
  Report Type: Spontaneous
  Country: US (occurrence: US)
  Receive Date: 20130606
  Receipt Date: 20130606
  Transmission Date: 20140414
  Serious: Yes (Other)
  Sender: FDA-Public Use
  Company Number: US-BRACCO-009568

PATIENT
  Age: 58 Year
  Sex: Female

DRUGS (3)
  1. IOPAMIDOL [Suspect]
     Indication: THERAPEUTIC EMBOLISATION
     Dosage: MIXED WITH ETHODIZED OIL, DOXORUBICIN AND FOLLOWED BY A GELATIN SPONGE MATERIAL
  2. ETHIODIZED OIL [Suspect]
     Indication: THERAPEUTIC EMBOLISATION
     Dosage: MIXED WITH ETHODIZED OIL, DOXORUBICIN AND GELATIN SPONGE MATERIAL
  3. DOXORUBICIN [Concomitant]

REACTIONS (1)
  - Hypothyroidism [Unknown]
